FAERS Safety Report 12302715 (Version 1)
Quarter: 2016Q2

REPORT INFORMATION
  Report Type: Spontaneous
  Country: US (occurrence: US)
  Receive Date: 20160425
  Receipt Date: 20160425
  Transmission Date: 20160815
  Serious: Yes (Life-Threatening, Hospitalization, Other)
  Sender: FDA-Public Use
  Company Number: US-BAUSCH-BL-2016-009481

PATIENT
  Age: 49 Year
  Sex: Male

DRUGS (2)
  1. MITOMYCIN C [Suspect]
     Active Substance: MITOMYCIN
     Indication: ANAL SQUAMOUS CELL CARCINOMA
     Route: 065
  2. 5-FLUOROURACIL [Suspect]
     Active Substance: FLUOROURACIL
     Indication: ANAL SQUAMOUS CELL CARCINOMA
     Route: 042

REACTIONS (4)
  - Myocarditis [Recovered/Resolved]
  - Tumour excision [Unknown]
  - Acute myocardial infarction [Recovered/Resolved]
  - Leg amputation [Recovered/Resolved]

NARRATIVE: CASE EVENT DATE: 2014
